FAERS Safety Report 5390038-2 (Version None)
Quarter: 2007Q3

REPORT INFORMATION
  Report Type: 
  Country: None (occurrence: None)
  Receive Date: 20070718
  Receipt Date: 20070711
  Transmission Date: 20080115
  Serious: Yes (Hospitalization)
  Sender: FDA-Public Use
  Company Number: IE-ABBOTT-07P-229-0359327-00

PATIENT
  Sex: Female

DRUGS (1)
  1. HUMIRA [Suspect]
     Indication: CROHN'S DISEASE
     Dates: start: 20061220

REACTIONS (4)
  - BLOOD ELECTROLYTES INCREASED [None]
  - BLOOD UREA INCREASED [None]
  - DEHYDRATION [None]
  - RENAL IMPAIRMENT [None]
